FAERS Safety Report 15079747 (Version 1)
Quarter: 2018Q2

REPORT INFORMATION
  Report Type: Spontaneous
  Country: IE (occurrence: IE)
  Receive Date: 20180627
  Receipt Date: 20180627
  Transmission Date: 20180711
  Serious: Yes (Other)
  Sender: FDA-Public Use
  Company Number: IE-SA-2018SA161144

PATIENT
  Age: 17 Year
  Sex: Male

DRUGS (5)
  1. ISONIAZID. [Suspect]
     Active Substance: ISONIAZID
     Indication: PULMONARY TUBERCULOSIS
  2. ETHAMBUTOL [Suspect]
     Active Substance: ETHAMBUTOL HYDROCHLORIDE
     Indication: PULMONARY TUBERCULOSIS
  3. PYRAZINAMIDE. [Suspect]
     Active Substance: PYRAZINAMIDE
     Indication: PULMONARY TUBERCULOSIS
  4. RIFAMPICIN [Suspect]
     Active Substance: RIFAMPIN
     Indication: PULMONARY TUBERCULOSIS
  5. PYRIDOXINE [Suspect]
     Active Substance: PYRIDOXINE
     Indication: PULMONARY TUBERCULOSIS

REACTIONS (9)
  - Rash [Unknown]
  - Leprosy [Unknown]
  - Papule [Unknown]
  - Neuropathy peripheral [Recovering/Resolving]
  - Areflexia [Recovering/Resolving]
  - Finger deformity [Unknown]
  - Muscular weakness [Unknown]
  - Skin mass [Unknown]
  - Rash erythematous [Unknown]
